FAERS Safety Report 25314182 (Version 1)
Quarter: 2025Q2

REPORT INFORMATION
  Report Type: Spontaneous
  Country: US (occurrence: None)
  Receive Date: 20250514
  Receipt Date: 20250514
  Transmission Date: 20250716
  Serious: Yes (Disabling)
  Sender: FDA-CTU
  Company Number: None

PATIENT
  Age: 12 Year
  Sex: Male
  Weight: 39.7 kg

DRUGS (5)
  1. THALOMID [Suspect]
     Active Substance: THALIDOMIDE
     Indication: Medulloblastoma recurrent
     Dosage: FREQUENCY : DAILY;?
     Route: 048
     Dates: start: 20241216, end: 20250428
  2. FENOFIBRATE [Concomitant]
     Active Substance: FENOFIBRATE
  3. CELEBREX [Concomitant]
     Active Substance: CELECOXIB
  4. ETOPOSIDE [Concomitant]
     Active Substance: ETOPOSIDE
  5. CYTOXAN [Concomitant]
     Active Substance: CYCLOPHOSPHAMIDE

REACTIONS (4)
  - Muscular weakness [None]
  - Ataxia [None]
  - Deafness [None]
  - Toxicity to various agents [None]

NARRATIVE: CASE EVENT DATE: 20250428
